FAERS Safety Report 9162365 (Version 1)
Quarter: 2013Q1

REPORT INFORMATION
  Report Type: Spontaneous
  Country: US (occurrence: US)
  Receive Date: 20130314
  Receipt Date: 20130314
  Transmission Date: 20140127
  Serious: Yes (Hospitalization)
  Sender: FDA-Public Use
  Company Number: US-BAYER-2013-028897

PATIENT
  Age: 26 Year
  Sex: Female

DRUGS (8)
  1. YAZ [Suspect]
  2. LEVSIN [Concomitant]
     Dosage: UNK
     Dates: start: 20070206
  3. PRILOSEC [Concomitant]
     Dosage: UNK
     Dates: start: 20070206
  4. DILAUDID [Concomitant]
     Indication: PAIN
  5. PERCOLONE [Concomitant]
  6. VICODIN [Concomitant]
     Dosage: UNK
     Route: 048
     Dates: start: 20070206
  7. DARVOCET [Concomitant]
     Dosage: UNK
     Route: 048
     Dates: start: 20070206
  8. XANAX [Concomitant]
     Dosage: UNK
     Dates: start: 20070206

REACTIONS (1)
  - Pulmonary embolism [Recovered/Resolved]
